FAERS Safety Report 4471474-5 (Version None)
Quarter: 2004Q4

REPORT INFORMATION
  Report Type: 
  Country: None (occurrence: None)
  Receive Date: 20041006
  Receipt Date: 20040920
  Transmission Date: 20050328
  Serious: Yes (Death)
  Sender: FDA-Public Use
  Company Number: 2004-BP-08406EX

PATIENT
  Age: 67 Year
  Sex: Female

DRUGS (3)
  1. DEXAMETHASONE [Suspect]
     Indication: MULTIPLE MYELOMA
     Dosage: CYCLIC: 40 MG/D/CYCLE (CYCLE 11) , PO
     Route: 048
     Dates: start: 20020922, end: 20030730
  2. GENASENSE [Suspect]
     Indication: MULTIPLE MYELOMA
     Dosage: CYCLIC: 3160 MG/WEEK/CYCLE (CYCLE 12)
     Dates: start: 20020919, end: 20030817
  3. METOPROLOL TARTRATE [Concomitant]

REACTIONS (1)
  - DEATH [None]
